FAERS Safety Report 21302762 (Version 1)
Quarter: 2022Q3

REPORT INFORMATION
  Report Type: Spontaneous
  Country: BR (occurrence: BR)
  Receive Date: 20220907
  Receipt Date: 20220907
  Transmission Date: 20221027
  Serious: Yes (Death)
  Sender: FDA-Public Use
  Company Number: BR-PFIZER INC-2017085404

PATIENT
  Age: 68 Year
  Sex: Male

DRUGS (2)
  1. SUTENT [Suspect]
     Active Substance: SUNITINIB MALATE
     Dosage: 50 MG, UNK
     Dates: start: 20170215
  2. DEXAMETHASONE [Suspect]
     Active Substance: DEXAMETHASONE
     Dosage: UNK

REACTIONS (11)
  - Death [Fatal]
  - Skin fissures [Unknown]
  - Rash macular [Not Recovered/Not Resolved]
  - Swelling [Unknown]
  - Skin discolouration [Unknown]
  - Dry skin [Unknown]
  - Yellow skin [Not Recovered/Not Resolved]
  - Asthenia [Unknown]
  - Fatigue [Unknown]
  - Decreased appetite [Unknown]
  - Mouth injury [Unknown]

NARRATIVE: CASE EVENT DATE: 20170101
